FAERS Safety Report 16430645 (Version 1)
Quarter: 2019Q2

REPORT INFORMATION
  Report Type: Spontaneous
  Country: US (occurrence: US)
  Receive Date: 20190507
  Receipt Date: 20190507
  Transmission Date: 20190711
  Serious: No
  Sender: FDA-Public Use
  Company Number: None

PATIENT
  Age: 80 Year
  Sex: Male
  Weight: 87.82 kg

DRUGS (1)
  1. INFLIXIMAB-ABDA [Suspect]
     Active Substance: INFLIXIMAB-ABDA
     Indication: CROHN^S DISEASE
     Dates: start: 20190103, end: 20190103

REACTIONS (4)
  - Erythema [None]
  - Malaise [None]
  - Chills [None]
  - Flushing [None]

NARRATIVE: CASE EVENT DATE: 20190103
